FAERS Safety Report 23087598 (Version 3)
Quarter: 2023Q4

REPORT INFORMATION
  Report Type: Other
  Country: GR (occurrence: None)
  Receive Date: 20231020
  Receipt Date: 20231129
  Transmission Date: 20240110
  Serious: Yes (Other)
  Sender: FDA-Public Use
  Company Number: GR-ROCHE-3441375

PATIENT

DRUGS (1)
  1. EMICIZUMAB [Suspect]
     Active Substance: EMICIZUMAB
     Indication: Factor VIII deficiency
     Dosage: LOADING REGIMEN OF 3 MG/KG/WEEK WAS INITIALLY ADMINISTERED FOR 4 WEEKS AND THEN 1.5 MG/KG/WEEK AS MA
     Route: 058

REACTIONS (1)
  - Haemarthrosis [Unknown]
